FAERS Safety Report 5882092-6 (Version None)
Quarter: 2008Q3

REPORT INFORMATION
  Report Type: 
  Country: None (occurrence: None)
  Receive Date: 20080912
  Receipt Date: 20080718
  Transmission Date: 20090109
  Serious: No
  Sender: FDA-Public Use
  Company Number: US-ABBOTT-08P-163-0465395-00

PATIENT
  Sex: Female
  Weight: 72.64 kg

DRUGS (5)
  1. HUMIRA [Suspect]
     Indication: PSORIASIS
     Route: 058
     Dates: start: 20080613, end: 20080613
  2. HUMIRA [Suspect]
     Route: 058
     Dates: start: 20080620, end: 20080620
  3. HUMIRA [Suspect]
     Route: 058
  4. DIOVAN HCT [Concomitant]
     Indication: HYPERTENSION
     Route: 048
  5. LEVOTHYROXINE SODIUM [Concomitant]
     Indication: HYPOTHYROIDISM
     Route: 048

REACTIONS (2)
  - INJECTION SITE REACTION [None]
  - URTICARIA [None]
